FAERS Safety Report 18975290 (Version 1)
Quarter: 2021Q1

REPORT INFORMATION
  Report Type: Report from Study
  Country: DE (occurrence: DE)
  Receive Date: 20210305
  Receipt Date: 20210305
  Transmission Date: 20210420
  Serious: Yes (Hospitalization, Other)
  Sender: FDA-Public Use
  Company Number: DE-TAKEDA-DE202016879

PATIENT
  Age: 61 Year
  Sex: Female
  Weight: 37 kg

DRUGS (2)
  1. HUMAN IMMUNOGLOBULIN; HYALURONIDASE [Suspect]
     Active Substance: HUMAN IMMUNOGLOBULIN G\HYALURONIDASE RECOMBINANT HUMAN
     Indication: WALDENSTROM^S MACROGLOBULINAEMIA
  2. HUMAN IMMUNOGLOBULIN; HYALURONIDASE [Suspect]
     Active Substance: HUMAN IMMUNOGLOBULIN G\HYALURONIDASE RECOMBINANT HUMAN
     Indication: SECONDARY IMMUNODEFICIENCY
     Dosage: 20 GRAM, 1X A MONTH
     Route: 058
     Dates: start: 20200518

REACTIONS (2)
  - Pneumonia [Not Recovered/Not Resolved]
  - Product use in unapproved indication [Unknown]
